FAERS Safety Report 15821616 (Version 1)
Quarter: 2019Q1

REPORT INFORMATION
  Report Type: Spontaneous
  Country: US (occurrence: US)
  Receive Date: 20190114
  Receipt Date: 20190114
  Transmission Date: 20190417
  Serious: Yes (Other)
  Sender: FDA-Public Use
  Company Number: US-HIKMA PHARMACEUTICALS USA INC.-US-H14001-19-00134

PATIENT
  Age: 56 Year
  Sex: Male
  Weight: 81 kg

DRUGS (15)
  1. MIDAZOLAM [Concomitant]
     Active Substance: MIDAZOLAM HYDROCHLORIDE
     Indication: ANXIOLYTIC THERAPY
     Route: 065
  2. NITROPRUSSIDE [Concomitant]
     Active Substance: NITROPRUSSIDE
     Indication: TACHYCARDIA
  3. PROPOFOL. [Concomitant]
     Active Substance: PROPOFOL
     Indication: INDUCTION OF ANAESTHESIA
     Route: 065
  4. HYDROCORTISONE. [Concomitant]
     Active Substance: HYDROCORTISONE
     Indication: PHAEOCHROMOCYTOMA
     Route: 065
  5. ROCURONIUM [Concomitant]
     Active Substance: ROCURONIUM BROMIDE
     Indication: INDUCTION OF ANAESTHESIA
     Route: 065
  6. ALPRAZOLAM. [Concomitant]
     Active Substance: ALPRAZOLAM
     Indication: ANXIETY
     Route: 065
  7. FENTANYL. [Concomitant]
     Active Substance: FENTANYL
     Indication: INDUCTION OF ANAESTHESIA
     Route: 065
  8. LIDOCAINE. [Concomitant]
     Active Substance: LIDOCAINE
     Indication: INDUCTION OF ANAESTHESIA
     Route: 065
  9. ESMOLOL [Concomitant]
     Active Substance: ESMOLOL HYDROCHLORIDE
     Indication: TACHYCARDIA
  10. NITROPRUSSIDE [Concomitant]
     Active Substance: NITROPRUSSIDE
     Indication: HYPERTENSION
     Route: 065
  11. PHENYLEPHRINE [Concomitant]
     Active Substance: PHENYLEPHRINE\PHENYLEPHRINE HYDROCHLORIDE
     Indication: MEAN ARTERIAL PRESSURE DECREASED
     Route: 065
  12. ESMOLOL [Concomitant]
     Active Substance: ESMOLOL HYDROCHLORIDE
     Indication: HYPERTENSION
     Route: 065
  13. PHENOXYBENZAMINE [Suspect]
     Active Substance: PHENOXYBENZAMINE
     Indication: PHAEOCHROMOCYTOMA
     Route: 065
  14. MIDAZOLAM [Concomitant]
     Active Substance: MIDAZOLAM HYDROCHLORIDE
     Indication: INDUCTION OF ANAESTHESIA
     Route: 065
  15. SEVOFLURANE. [Concomitant]
     Active Substance: SEVOFLURANE
     Indication: MAINTENANCE OF ANAESTHESIA

REACTIONS (7)
  - Ventricular tachycardia [Recovered/Resolved]
  - Nausea [Unknown]
  - Atrial fibrillation [Recovered/Resolved]
  - ECG signs of myocardial ischaemia [Unknown]
  - Flushing [Unknown]
  - Hypotension [Unknown]
  - Malaise [Unknown]
